FAERS Safety Report 5250635-1 (Version None)
Quarter: 2007Q1

REPORT INFORMATION
  Report Type: 
  Country: None (occurrence: None)
  Receive Date: 20070228
  Receipt Date: 20060609
  Transmission Date: 20070707
  Serious: No
  Sender: FDA-Public Use
  Company Number: US-GLAXOSMITHKLINE-A0608480A

PATIENT
  Age: 19 Year
  Sex: Female

DRUGS (1)
  1. LAMICTAL [Suspect]
     Route: 048
     Dates: start: 20040101

REACTIONS (2)
  - DENTAL CARIES [None]
  - MOUTH ULCERATION [None]
